FAERS Safety Report 6425118-3 (Version None)
Quarter: 2009Q4

REPORT INFORMATION
  Report Type: 
  Country: None (occurrence: None)
  Receive Date: 20091102
  Receipt Date: 20091102
  Transmission Date: 20100525
  Serious: Yes (Other)
  Sender: FDA-Public Use
  Company Number: None

PATIENT
  Age: 67 Year
  Sex: Female
  Weight: 68.0396 kg

DRUGS (1)
  1. A+D ZINC OXIDE CREAM 4OZ -113G- DIAPER RASH CREAM GOLD STANDARD OF PRO [Suspect]
     Indication: SKIN IRRITATION
     Dosage: TUBE CONTAINS 4 OZ AS NEEDED TOP  1 EVENING
     Route: 061
     Dates: start: 20091022, end: 20091022

REACTIONS (4)
  - DIARRHOEA [None]
  - FAECES DISCOLOURED [None]
  - GASTROINTESTINAL DISORDER [None]
  - REACTION TO DRUG EXCIPIENTS [None]
